FAERS Safety Report 5358443-8 (Version None)
Quarter: 2007Q2

REPORT INFORMATION
  Report Type: 
  Country: None (occurrence: None)
  Receive Date: 20070601
  Receipt Date: 20070206
  Transmission Date: 20071010
  Serious: Yes (Other)
  Sender: FDA-Public Use
  Company Number: PHEH2006US12601

PATIENT

DRUGS (9)
  1. ENABLEX [Suspect]
     Indication: HYPERTONIC BLADDER
     Dosage: 7.5 MG,
     Dates: start: 20050211, end: 20050811
  2. AMITRIPTYLINE HCL [Concomitant]
  3. EFFEXOR XR [Concomitant]
  4. LORTAB [Concomitant]
  5. COUMADIN [Concomitant]
  6. TEGRETOL [Concomitant]
  7. PHENOBARBITAL TAB [Concomitant]
  8. HYDROCHLOROTHIAZIDE [Concomitant]
  9. ARIMIDEX (ANASTRAZOLE) [Concomitant]

REACTIONS (2)
  - DYSURIA [None]
  - URINARY RETENTION [None]
